FAERS Safety Report 4499490-8 (Version None)
Quarter: 2004Q4

REPORT INFORMATION
  Report Type: 
  Country: None (occurrence: None)
  Receive Date: 20040928
  Receipt Date: 20040621
  Transmission Date: 20050328
  Serious: No
  Sender: FDA-Public Use
  Company Number: 04P-163-0264409-00

PATIENT
  Age: 62 Year
  Sex: Female
  Weight: 90.7194 kg

DRUGS (7)
  1. HUMIRA [Suspect]
     Indication: RHEUMATOID ARTHRITIS
     Dosage: 40 MG, 1 IN 2 WK, SUBCUTANEOUS
     Route: 058
     Dates: start: 20030501, end: 20040501
  2. METHOTREXATE [Concomitant]
  3. OXAPROZIN [Concomitant]
  4. MULTI-VITAMINS [Concomitant]
  5. MAXZIDE [Concomitant]
  6. RALOXIFENE HCL [Concomitant]
  7. PRAVASTATIN SODIUM [Concomitant]

REACTIONS (1)
  - DYSPNOEA [None]
